FAERS Safety Report 15398115 (Version 1)
Quarter: 2018Q3

REPORT INFORMATION
  Report Type: Spontaneous
  Country: US (occurrence: US)
  Receive Date: 20180918
  Receipt Date: 20180918
  Transmission Date: 20181010
  Serious: Yes (Other)
  Sender: FDA-Public Use
  Company Number: US-SA-2018SA252241

PATIENT
  Sex: Male

DRUGS (1)
  1. SOLIQUA 100/33 [Suspect]
     Active Substance: INSULIN GLARGINE\LIXISENATIDE
     Dosage: 40 U, QD
     Route: 065

REACTIONS (4)
  - Blood glucose increased [Unknown]
  - Loss of consciousness [Unknown]
  - Dysgeusia [Unknown]
  - Nausea [Unknown]
